FAERS Safety Report 16597894 (Version 2)
Quarter: 2019Q3

REPORT INFORMATION
  Report Type: Spontaneous
  Country: US (occurrence: US)
  Receive Date: 20190719
  Receipt Date: 20190823
  Transmission Date: 20191004
  Serious: No
  Sender: FDA-Public Use
  Company Number: US-PFIZER INC-2019309574

PATIENT
  Age: 26 Year

DRUGS (2)
  1. LYRICA [Suspect]
     Active Substance: PREGABALIN
     Dosage: 25 MG, UNK
  2. LYRICA [Suspect]
     Active Substance: PREGABALIN
     Dosage: 100 MG, UNK

REACTIONS (3)
  - Intentional product use issue [Unknown]
  - Drug ineffective [Unknown]
  - Pain [Unknown]
